FAERS Safety Report 6902363-1 (Version None)
Quarter: 2010Q3

REPORT INFORMATION
  Report Type: 
  Country: None (occurrence: None)
  Receive Date: 20100803
  Receipt Date: 20080521
  Transmission Date: 20110219
  Serious: No
  Sender: FDA-Public Use
  Company Number: US-PFIZER INC-2008044740

PATIENT
  Sex: Male
  Weight: 81.8 kg

DRUGS (5)
  1. LYRICA [Suspect]
     Indication: PAIN
     Dates: start: 20061001, end: 20071201
  2. LORTAB [Concomitant]
  3. DILANTIN [Concomitant]
  4. NEXIUM [Concomitant]
     Indication: GASTROOESOPHAGEAL REFLUX DISEASE
  5. VALIUM [Concomitant]

REACTIONS (2)
  - DYSKINESIA [None]
  - VISUAL IMPAIRMENT [None]
